FAERS Safety Report 11163735 (Version 1)
Quarter: 2015Q2

REPORT INFORMATION
  Report Type: Spontaneous
  Country: US (occurrence: US)
  Receive Date: 20150604
  Receipt Date: 20150604
  Transmission Date: 20150821
  Serious: No
  Sender: FDA-Public Use
  Company Number: US-SUN PHARMACEUTICAL INDUSTRIES LTD-2015SUN00312

PATIENT
  Sex: Male

DRUGS (3)
  1. OXYCODONE HCL C-II TABS 30MG [Suspect]
     Active Substance: OXYCODONE HYDROCHLORIDE
     Indication: INTERVERTEBRAL DISC DEGENERATION
     Dosage: UNK
     Route: 065
     Dates: start: 201501
  2. OXYCODONE HCL C-II TABS 30MG [Suspect]
     Active Substance: OXYCODONE HYDROCHLORIDE
     Indication: NEUROPATHY PERIPHERAL
  3. OXYCODONE HCL C-II TABS 30MG [Suspect]
     Active Substance: OXYCODONE HYDROCHLORIDE
     Indication: LYMPHOEDEMA

REACTIONS (3)
  - Abdominal discomfort [Unknown]
  - Pruritus [Unknown]
  - Drug ineffective [Unknown]

NARRATIVE: CASE EVENT DATE: 201501
